FAERS Safety Report 5739864-8 (Version None)
Quarter: 2008Q2

REPORT INFORMATION
  Report Type: 
  Country: None (occurrence: None)
  Receive Date: 20080513
  Receipt Date: 20080430
  Transmission Date: 20081010
  Serious: Yes (Death, Hospitalization)
  Sender: FDA-Public Use
  Company Number: 6041467

PATIENT
  Age: 68 Year
  Sex: Male

DRUGS (16)
  1. BISOPROLOL MERCK (BISOPROLOL FUMARATE) [Suspect]
     Indication: ATRIAL FIBRILLATION
     Dosage: 2.5 MG (2.5 MG MG, 1-0-0)
     Dates: start: 20080101
  2. FORTECORTIN (2 MG) (DEXAMETHASONE) [Suspect]
     Indication: DRUG USE FOR UNKNOWN INDICATION
     Dosage: 6 MG (2 MG, 3 IN 1 D); 0.5 MG (0.5 MG, 1-0-0); 2 MG (2 MG, 1-0-0)
     Dates: start: 20071029
  3. FORTECORTIN (2 MG) (DEXAMETHASONE) [Suspect]
     Indication: DRUG USE FOR UNKNOWN INDICATION
     Dosage: 6 MG (2 MG, 3 IN 1 D); 0.5 MG (0.5 MG, 1-0-0); 2 MG (2 MG, 1-0-0)
     Dates: start: 20071105
  4. TEMODAL [Suspect]
     Indication: CHEMOTHERAPY
     Dosage: (75 MG/M2); (200 MG/M2)
     Dates: start: 20071126, end: 20071228
  5. TEMODAL [Suspect]
     Indication: RADIOTHERAPY
     Dosage: (75 MG/M2); (200 MG/M2)
     Dates: start: 20071126, end: 20071228
  6. TEMODAL [Suspect]
     Indication: CHEMOTHERAPY
     Dosage: (75 MG/M2); (200 MG/M2)
     Dates: start: 20080327, end: 20080331
  7. TEMODAL [Suspect]
     Indication: RADIOTHERAPY
     Dosage: (75 MG/M2); (200 MG/M2)
     Dates: start: 20080327, end: 20080331
  8. DIPYRONE TAB [Suspect]
     Indication: PAIN
     Dosage: 20 DROPS AS NEED (20 GTT)
  9. HCT 25 (25 MG) (HYDROCHLOROTHIAZIDE) [Suspect]
     Indication: CARDIAC FAILURE
     Dosage: 25 MG (25 MG, 1-0-0)
  10. UNAT 10 MG (10 MG) (TORASEMIDE) [Suspect]
     Indication: CARDIAC FAILURE
     Dosage: 20 MG (10 MG, 2 IN 1 D); 10 MG (10 MG, 1-0-0)
     Dates: start: 20071211
  11. UNAT 10 MG (10 MG) (TORASEMIDE) [Suspect]
     Indication: OEDEMA PERIPHERAL
     Dosage: 20 MG (10 MG, 2 IN 1 D); 10 MG (10 MG, 1-0-0)
     Dates: start: 20071211
  12. UNAT 10 MG (10 MG) (TORASEMIDE) [Suspect]
     Indication: CARDIAC FAILURE
     Dosage: 20 MG (10 MG, 2 IN 1 D); 10 MG (10 MG, 1-0-0)
     Dates: start: 20080411
  13. UNAT 10 MG (10 MG) (TORASEMIDE) [Suspect]
     Indication: OEDEMA PERIPHERAL
     Dosage: 20 MG (10 MG, 2 IN 1 D); 10 MG (10 MG, 1-0-0)
     Dates: start: 20080411
  14. LISINOPRIL [Suspect]
     Indication: HYPERTENSION
     Dosage: 20 MG (20 MG, 2-0-0)
  15. NEXIUM [Suspect]
     Indication: PROPHYLAXIS
     Dosage: 40 MG (40 MG, 1 IN 1 D)
  16. FELODIPINE 5 MG (5 MG) (FELODIPINE) [Concomitant]

REACTIONS (12)
  - ATRIAL FIBRILLATION [None]
  - BRADYPHRENIA [None]
  - BURSITIS [None]
  - CANDIDIASIS [None]
  - CARDIAC DISORDER [None]
  - CARDIAC FAILURE [None]
  - DIABETES MELLITUS INADEQUATE CONTROL [None]
  - FATIGUE [None]
  - HYPOKALAEMIA [None]
  - MOBILITY DECREASED [None]
  - MUSCULAR WEAKNESS [None]
  - WEIGHT DECREASED [None]
